FAERS Safety Report 14906667 (Version 1)
Quarter: 2018Q2

REPORT INFORMATION
  Report Type: Spontaneous
  Country: US (occurrence: US)
  Receive Date: 20180517
  Receipt Date: 20180517
  Transmission Date: 20180711
  Serious: No
  Sender: FDA-Public Use
  Company Number: US-SA-2016SA236053

PATIENT
  Age: 80 Year
  Sex: Male

DRUGS (3)
  1. LANTUS [Suspect]
     Active Substance: INSULIN GLARGINE
     Indication: TYPE 1 DIABETES MELLITUS
     Dosage: DOSE:24 UNIT(S)
     Route: 065
     Dates: start: 20130705, end: 20170317
  2. DUREZOL [Concomitant]
     Active Substance: DIFLUPREDNATE
     Indication: EYE INFLAMMATION
     Route: 065
     Dates: start: 20161214, end: 20170607
  3. REPAGLINIDE. [Concomitant]
     Active Substance: REPAGLINIDE
     Indication: DIABETES MELLITUS
     Route: 065
     Dates: start: 20140423

REACTIONS (2)
  - Blood glucose increased [Unknown]
  - Drug ineffective [Unknown]

NARRATIVE: CASE EVENT DATE: 201612
